FAERS Safety Report 4291568-7 (Version None)
Quarter: 2004Q1

REPORT INFORMATION
  Report Type: 
  Country: None (occurrence: None)
  Receive Date: 20040211
  Receipt Date: 20030926
  Transmission Date: 20041129
  Serious: No
  Sender: FDA-Public Use
  Company Number: US-GLAXOSMITHKLINE-A0427684A

PATIENT
  Age: 42 Year
  Sex: Female

DRUGS (1)
  1. IMITREX [Suspect]
     Indication: MIGRAINE
     Dosage: 1INJ TWICE PER DAY
     Route: 058
     Dates: start: 20030924, end: 20030924

REACTIONS (1)
  - DRUG INEFFECTIVE [None]
